FAERS Safety Report 9248540 (Version 2)
Quarter: 2014Q1

REPORT INFORMATION
  Report Type: Report from Study
  Country: GB (occurrence: GB)
  Receive Date: 20130423
  Receipt Date: 20140325
  Transmission Date: 20141002
  Serious: Yes (Hospitalization, Disabling, Other)
  Sender: FDA-Public Use
  Company Number: GB-ROCHE-1214809

PATIENT
  Age: 81 Year
  Sex: Male

DRUGS (3)
  1. RANIBIZUMAB [Suspect]
     Indication: AGE-RELATED MACULAR DEGENERATION
     Route: 050
     Dates: start: 20120628
  2. RANIBIZUMAB [Suspect]
     Dosage: LAST DOSE OF RANIBIZUMAB PRIOR TO SAE: 25/APR/2013
     Route: 050
     Dates: start: 20121025
  3. FERROUS FUMARATE [Concomitant]

REACTIONS (6)
  - Mesothelioma malignant [Not Recovered/Not Resolved]
  - Hypotension [Unknown]
  - Hypovolaemic shock [Unknown]
  - Left ventricular hypertrophy [Unknown]
  - Carotid artery stenosis [Unknown]
  - Haemoglobin decreased [Unknown]
